FAERS Safety Report 7133714-3 (Version None)
Quarter: 2010Q4

REPORT INFORMATION
  Report Type: 
  Country: None (occurrence: None)
  Receive Date: 20101203
  Receipt Date: 20101122
  Transmission Date: 20110411
  Serious: Yes (Hospitalization, Other)
  Sender: FDA-Public Use
  Company Number: US-BIOGENIDEC-2010BI008426

PATIENT
  Age: 56 Year
  Sex: Male

DRUGS (18)
  1. TYSABRI [Suspect]
     Indication: MULTIPLE SCLEROSIS
     Route: 042
     Dates: start: 20080616
  2. ACETAMINOPHEN [Concomitant]
     Route: 048
     Dates: start: 20100613
  3. AMITRIPTYLINE HCL [Concomitant]
  4. CALCIUM [Concomitant]
  5. DEXAMETHASONE [Concomitant]
  6. ENALAPRIL MALEATE [Concomitant]
  7. FLEXERIL [Concomitant]
  8. MECLIZINE [Concomitant]
  9. ONDANSETRON [Concomitant]
  10. OXYBUTYNIN [Concomitant]
     Route: 048
     Dates: start: 20100613
  11. SERTRALINE HYDROCHLORIDE [Concomitant]
  12. SERTRALINE HYDROCHLORIDE [Concomitant]
     Dates: start: 20100615
  13. COUMADIN [Concomitant]
     Indication: PERIPHERAL VASCULAR DISORDER
  14. OMEPRAZOLE [Concomitant]
     Route: 048
  15. LISINOPRIL [Concomitant]
     Route: 048
  16. BACLOFEN [Concomitant]
     Route: 048
     Dates: start: 20100613
  17. ENABLEX [Concomitant]
     Route: 048
  18. NORCO 5/325 [Concomitant]
     Indication: PAIN
     Route: 048
     Dates: start: 20100622

REACTIONS (2)
  - CEREBELLAR HAEMORRHAGE [None]
  - DEEP VEIN THROMBOSIS [None]
